FAERS Safety Report 16882182 (Version 2)
Quarter: 2019Q4

REPORT INFORMATION
  Report Type: Spontaneous
  Country: US (occurrence: US)
  Receive Date: 20191003
  Receipt Date: 20191106
  Transmission Date: 20200122
  Serious: Yes (Hospitalization, Other)
  Sender: FDA-Public Use
  Company Number: US-UNITED THERAPEUTICS-UNT-2019-016322

PATIENT
  Age: 22 Year
  Sex: Male
  Weight: 44.55 kg

DRUGS (3)
  1. TYVASO [Suspect]
     Active Substance: TREPROSTINIL
     Dosage: 18 ?G, QID
     Dates: start: 20130507
  2. TYVASO [Suspect]
     Active Substance: TREPROSTINIL
     Indication: PULMONARY ARTERIAL HYPERTENSION
     Dosage: 84 ?G, QID
  3. ADCIRCA [Concomitant]
     Active Substance: TADALAFIL
     Indication: PRODUCT USED FOR UNKNOWN INDICATION
     Dosage: UNK
     Route: 065

REACTIONS (13)
  - Oxygen saturation decreased [Unknown]
  - Decreased appetite [Unknown]
  - Somnolence [Unknown]
  - Rhinitis [Unknown]
  - Angioedema [Unknown]
  - Pulmonary congestion [Unknown]
  - Iron deficiency anaemia [Unknown]
  - Malaise [Unknown]
  - Pyrexia [Unknown]
  - Yawning [Unknown]
  - Off label use [Unknown]
  - Respiratory disorder [Unknown]
  - Lethargy [Unknown]

NARRATIVE: CASE EVENT DATE: 201809
